FAERS Safety Report 16916879 (Version 3)
Quarter: 2023Q2

REPORT INFORMATION
  Report Type: Spontaneous
  Country: GB (occurrence: GB)
  Receive Date: 20191015
  Receipt Date: 20230416
  Transmission Date: 20230722
  Serious: Yes (Death, Other)
  Sender: FDA-Public Use
  Company Number: GB-EMA-DD-20191004-GANGAL_S-081449

PATIENT
  Age: 16 Year
  Sex: Male

DRUGS (8)
  1. ACETAMINOPHEN [Suspect]
     Active Substance: ACETAMINOPHEN
     Indication: Product used for unknown indication
     Dosage: UNK
     Route: 065
  2. ACETAMINOPHEN [Suspect]
     Active Substance: ACETAMINOPHEN
     Dosage: 2 DOSAGE FORM
     Route: 048
  3. CHLORPHENIRAMINE MALEATE [Suspect]
     Active Substance: CHLORPHENIRAMINE MALEATE
     Indication: Product used for unknown indication
     Dosage: UNK
     Route: 065
  4. CHLORPHENIRAMINE MALEATE [Suspect]
     Active Substance: CHLORPHENIRAMINE MALEATE
     Dosage: 21 DOSAGE FORM
     Route: 048
  5. CHLORPHENIRAMINE MALEATE [Suspect]
     Active Substance: CHLORPHENIRAMINE MALEATE
     Dosage: 21 UNK
     Route: 065
  6. CHLORPHENIRAMINE MALEATE [Suspect]
     Active Substance: CHLORPHENIRAMINE MALEATE
     Dosage: 21 TABLETS
     Route: 065
  7. ISOTRETINOIN [Suspect]
     Active Substance: ISOTRETINOIN
     Indication: Acne
     Dosage: 80 MG, QD
     Route: 048
     Dates: start: 201005
  8. ISOTRETINOIN [Suspect]
     Active Substance: ISOTRETINOIN
     Indication: Product used for unknown indication
     Dosage: UNK
     Route: 065

REACTIONS (17)
  - Completed suicide [Fatal]
  - Gastric infection [Fatal]
  - Lip dry [Fatal]
  - Erythema [Fatal]
  - Localised infection [Fatal]
  - Ingrowing nail [Fatal]
  - Pain in extremity [Fatal]
  - Personality change [Fatal]
  - Scar [Fatal]
  - Dry skin [Fatal]
  - Oropharyngeal pain [Fatal]
  - Aggression [Fatal]
  - Psychiatric symptom [Fatal]
  - Depression [Fatal]
  - Suicidal ideation [Fatal]
  - Suicide attempt [Fatal]
  - Overdose [Fatal]

NARRATIVE: CASE EVENT DATE: 20100928
